FAERS Safety Report 18079622 (Version 2)
Quarter: 2020Q4

REPORT INFORMATION
  Report Type: Report from Study
  Country: US (occurrence: US)
  Receive Date: 20200728
  Receipt Date: 20201008
  Transmission Date: 20210113
  Serious: Yes (Life-Threatening)
  Sender: FDA-Public Use
  Company Number: NVSC2020US196498

PATIENT
  Age: 63 Year
  Sex: Male

DRUGS (10)
  1. BLINDED INC424 [Suspect]
     Active Substance: RUXOLITINIB
     Indication: ACUTE RESPIRATORY DISTRESS SYNDROME
  2. BLINDED NO TREATMENT RECEIVED [Suspect]
     Active Substance: INVESTIGATIONAL PRODUCT
     Indication: ACUTE RESPIRATORY DISTRESS SYNDROME
  3. AMIODARONE [Suspect]
     Active Substance: AMIODARONE
     Indication: ATRIAL FIBRILLATION
     Dosage: VARIOUS DOSES
     Route: 065
     Dates: start: 20200531
  4. AMIODARONE [Suspect]
     Active Substance: AMIODARONE
     Dosage: 400 MG, TID
     Route: 065
     Dates: start: 20200624, end: 20200627
  5. AMIODARONE [Suspect]
     Active Substance: AMIODARONE
     Dosage: 0.5 MG/MIN, CONTINUOUS
     Route: 065
     Dates: start: 20200623, end: 20200624
  6. PLACEBO [Suspect]
     Active Substance: UNSPECIFIED INGREDIENT
     Indication: ACUTE RESPIRATORY DISTRESS SYNDROME
  7. BLINDED NO TREATMENT RECEIVED [Suspect]
     Active Substance: INVESTIGATIONAL PRODUCT
     Indication: COVID-19
     Dosage: CODE NOT BROKEN
     Route: 048
     Dates: start: 20200624
  8. AMIODARONE [Suspect]
     Active Substance: AMIODARONE
     Dosage: 200 MG, BID
     Route: 065
     Dates: start: 20200627, end: 20200630
  9. BLINDED INC424 [Suspect]
     Active Substance: RUXOLITINIB
     Indication: COVID-19
     Dosage: CODE NOT BROKEN
     Route: 048
     Dates: start: 20200624
  10. PLACEBO [Suspect]
     Active Substance: UNSPECIFIED INGREDIENT
     Indication: COVID-19
     Dosage: CODE NOT BROKEN
     Route: 048
     Dates: start: 20200624

REACTIONS (1)
  - Torsade de pointes [Recovered/Resolved]

NARRATIVE: CASE EVENT DATE: 20200630
